FAERS Safety Report 8862122 (Version 2)
Quarter: 2012Q4

REPORT INFORMATION
  Report Type: 
  Country: US (occurrence: US)
  Receive Date: 20121026
  Receipt Date: 20121203
  Transmission Date: 20130627
  Serious: No
  Sender: FDA-Public Use
  Company Number: US-PFIZER INC-2012266260

PATIENT
  Age: 60 Year
  Sex: Male
  Weight: 68.03 kg

DRUGS (4)
  1. ALAVERT [Suspect]
     Indication: ALLERGY
     Dosage: UNK
     Route: 048
     Dates: start: 2010
  2. ALAVERT [Suspect]
     Dosage: 1 tablet, daily
     Route: 048
     Dates: end: 201210
  3. ALAVERT [Suspect]
     Dosage: 2 tablet, daily
     Route: 048
     Dates: start: 201210, end: 201210
  4. ALAVERT [Suspect]
     Dosage: UNK

REACTIONS (2)
  - Overdose [Unknown]
  - Drug ineffective [Unknown]
